FAERS Safety Report 13512809 (Version 1)
Quarter: 2017Q2

REPORT INFORMATION
  Report Type: Spontaneous
  Country: CH (occurrence: GB)
  Receive Date: 20170504
  Receipt Date: 20170504
  Transmission Date: 20170830
  Serious: Yes (Life-Threatening)
  Sender: FDA-Public Use
  Company Number: CH-LPDUSPRD-20170542

PATIENT
  Age: 36 Year
  Sex: Male
  Weight: 114 kg

DRUGS (5)
  1. EPLERENONE. [Concomitant]
     Active Substance: EPLERENONE
     Dosage: 25MG
     Route: 048
     Dates: start: 20170215
  2. FERINJECT [Suspect]
     Active Substance: FERRIC CARBOXYMALTOSE
     Dosage: 500MG
     Route: 042
     Dates: start: 20170306, end: 20170306
  3. DOXAZOSIN [Concomitant]
     Active Substance: DOXAZOSIN\DOXAZOSIN MESYLATE
     Dosage: 8 MG
     Route: 048
     Dates: start: 20170215
  4. AMLODIPINE [Concomitant]
     Active Substance: AMLODIPINE BESYLATE
     Dosage: 10MG
     Route: 048
     Dates: start: 20170215
  5. COCODAMOL [Concomitant]
     Active Substance: ACETAMINOPHEN\CODEINE PHOSPHATE
     Dosage: 2 DF
     Route: 048
     Dates: start: 20170215

REACTIONS (4)
  - Dizziness [Unknown]
  - Tachycardia [Unknown]
  - Chest pain [Unknown]
  - Presyncope [Unknown]

NARRATIVE: CASE EVENT DATE: 20170306
